FAERS Safety Report 10191337 (Version 1)
Quarter: 2014Q2

REPORT INFORMATION
  Report Type: Spontaneous
  Country: US (occurrence: US)
  Receive Date: 20140523
  Receipt Date: 20140523
  Transmission Date: 20141212
  Serious: No
  Sender: FDA-Public Use
  Company Number: US-009507513-1405USA008179

PATIENT
  Sex: Female

DRUGS (1)
  1. DULERA [Suspect]
     Dosage: 2 PUFFS TWICE A DAY
     Route: 055
     Dates: start: 2013

REACTIONS (4)
  - Incorrect dosage administered [Unknown]
  - Product container issue [Unknown]
  - Wrong technique in drug usage process [Unknown]
  - No adverse event [Unknown]
